FAERS Safety Report 26195064 (Version 1)
Quarter: 2025Q4

REPORT INFORMATION
  Report Type: Spontaneous
  Country: US (occurrence: US)
  Receive Date: 20251224
  Receipt Date: 20251224
  Transmission Date: 20260118
  Serious: No
  Sender: NOVARTIS
  Company Number: US-SANDOZ-SDZ2025US097006

PATIENT
  Sex: Female
  Weight: 70 kg

DRUGS (2)
  1. CYCLOSPORINE [Suspect]
     Active Substance: CYCLOSPORINE
     Indication: Product used for unknown indication
     Dosage: UNK
     Route: 065
  2. DUPIXENT [Suspect]
     Active Substance: DUPILUMAB
     Indication: Product used for unknown indication
     Dosage: 300 MG, QW (300 MG, QW (STRENGTH OF 300MG/2M))
     Route: 058

REACTIONS (5)
  - Pain in extremity [Unknown]
  - Urticaria [Unknown]
  - Muscle spasms [Unknown]
  - Drug ineffective [Unknown]
  - Product dose omission issue [Unknown]
